FAERS Safety Report 4704241-5 (Version None)
Quarter: 2005Q2

REPORT INFORMATION
  Report Type: 
  Country: None (occurrence: None)
  Receive Date: 20050628
  Receipt Date: 20050614
  Transmission Date: 20051028
  Serious: Yes (Hospitalization, Other)
  Sender: FDA-Public Use
  Company Number: WAES 0506USA02063

PATIENT
  Age: 72 Year
  Sex: Female
  Weight: 67.1324 kg

DRUGS (7)
  1. FOSAMAX [Suspect]
     Indication: OSTEOPOROSIS
     Dosage: 70 MG/ WKY/ PO
     Route: 048
     Dates: start: 20041130, end: 20050216
  2. TAB IBANDRONATE SODIUM 150 MG [Suspect]
     Indication: OSTEOPOROSIS
     Dosage: 150 MG/ MTH/ PO
     Route: 048
     Dates: start: 20050223, end: 20050423
  3. LISINOPRIL [Suspect]
     Dosage: 10 MG/ DAILY/ PO
     Route: 048
     Dates: start: 20040101, end: 20050601
  4. IBUPROFEN [Suspect]
     Dosage: 800 TID MG/ PRN
     Dates: end: 20050601
  5. NORVASC [Concomitant]
  6. PROTONIX [Concomitant]
  7. BUPROPION HYDROCHLORIDE [Concomitant]

REACTIONS (15)
  - ABDOMINAL PAIN [None]
  - ANOREXIA [None]
  - ASTHENIA [None]
  - BLOOD PRESSURE SYSTOLIC INCREASED [None]
  - BODY TEMPERATURE DECREASED [None]
  - DIARRHOEA [None]
  - DYSPNOEA EXERTIONAL [None]
  - GOITRE [None]
  - HAEMOGLOBIN DECREASED [None]
  - INFLUENZA [None]
  - NAUSEA [None]
  - ORAL INTAKE REDUCED [None]
  - RENAL FAILURE ACUTE [None]
  - VOMITING [None]
  - WEIGHT DECREASED [None]
